FAERS Safety Report 23429599 (Version 1)
Quarter: 2024Q1

REPORT INFORMATION
  Report Type: Spontaneous
  Country: GB (occurrence: GB)
  Receive Date: 20240122
  Receipt Date: 20240122
  Transmission Date: 20240410
  Serious: Yes (Disabling)
  Sender: FDA-Public Use
  Company Number: None

PATIENT
  Age: 16 Year

DRUGS (5)
  1. DEPO-PROVERA [Suspect]
     Active Substance: MEDROXYPROGESTERONE ACETATE
     Indication: Pelvic pain
     Dosage: 150MG
     Dates: start: 20231009, end: 202401
  2. ASPIRIN [Concomitant]
     Active Substance: ASPIRIN
     Dosage: UNK
  3. DICLOFENAC [Concomitant]
     Active Substance: DICLOFENAC
     Dosage: UNK
  4. PENICILLIN V [Concomitant]
     Active Substance: PENICILLIN V
     Dosage: UNK
  5. UREA AND LAUROMACROGOLS [Concomitant]
     Dosage: UNK

REACTIONS (2)
  - Paraesthesia [Recovering/Resolving]
  - Off label use [Unknown]
